FAERS Safety Report 6377843-0 (Version None)
Quarter: 2009Q3

REPORT INFORMATION
  Report Type: 
  Country: None (occurrence: None)
  Receive Date: 20090921
  Receipt Date: 20090914
  Transmission Date: 20100115
  Serious: Yes (Death)
  Sender: FDA-Public Use
  Company Number: AE-2009-184

PATIENT
  Age: 47 Year
  Sex: Female

DRUGS (6)
  1. METOPROLOL [Suspect]
     Dosage: ORAL
     Route: 048
  2. VENLAFAXINE [Suspect]
     Dosage: ORAL
     Route: 048
  3. PHENYTOIN [Suspect]
     Dosage: ORAL
     Route: 048
  4. BENZODIAZEPINE [Suspect]
     Dosage: ORAL
     Route: 048
  5. TRAZODONE HCL [Suspect]
     Dosage: ORAL
     Route: 048
  6. GABAPENTIN [Suspect]
     Dosage: ORAL
     Route: 048

REACTIONS (1)
  - COMPLETED SUICIDE [None]
